FAERS Safety Report 14196080 (Version 1)
Quarter: 2017Q4

REPORT INFORMATION
  Report Type: Spontaneous
  Country: US (occurrence: None)
  Receive Date: 20171116
  Receipt Date: 20171116
  Transmission Date: 20180321
  Serious: Yes (Disabling)
  Sender: FDA-Public Use
  Company Number: None

PATIENT
  Age: 76 Year
  Sex: Female
  Weight: 65.77 kg

DRUGS (9)
  1. MAGNESIUM [Concomitant]
     Active Substance: MAGNESIUM
  2. PROLIA [Suspect]
     Active Substance: DENOSUMAB
     Indication: OSTEOPOROSIS
     Dosage: SHOT ONCE EVERY 6 MONTHS INJECTION
     Dates: start: 20170504
  3. CALCIUM [Concomitant]
     Active Substance: CALCIUM
  4. VIT B [Concomitant]
     Active Substance: VITAMIN B
  5. ELIQUIS [Concomitant]
     Active Substance: APIXABAN
  6. VIT B1 [Concomitant]
     Active Substance: THIAMINE
  7. VITAMIN B12 [Concomitant]
     Active Substance: CYANOCOBALAMIN
  8. VITAMIN C [Concomitant]
     Active Substance: ASCORBIC ACID
  9. VITAMIN D [Concomitant]
     Active Substance: CHOLECALCIFEROL

REACTIONS (6)
  - Throat tightness [None]
  - Osteomyelitis [None]
  - Tooth loss [None]
  - Hypoacusis [None]
  - Asthenia [None]
  - Fatigue [None]
